FAERS Safety Report 8388928-1 (Version None)
Quarter: 2012Q2

REPORT INFORMATION
  Report Type: 
  Country: None (occurrence: None)
  Receive Date: 20120528
  Receipt Date: 20120523
  Transmission Date: 20120825
  Serious: No
  Sender: FDA-Public Use
  Company Number: US-BIOGENIDEC-2012BI018181

PATIENT
  Age: 47 Year
  Sex: Female

DRUGS (2)
  1. TYSABRI [Suspect]
     Route: 042
     Dates: start: 20101111, end: 20120301
  2. TYSABRI [Suspect]
     Indication: MULTIPLE SCLEROSIS
     Route: 042
     Dates: start: 20080228, end: 20080527

REACTIONS (5)
  - SLUGGISHNESS [None]
  - MULTIPLE SCLEROSIS [None]
  - SPEECH DISORDER [None]
  - HYPERSOMNIA [None]
  - VISUAL IMPAIRMENT [None]
